FAERS Safety Report 10330848 (Version 5)
Quarter: 2015Q1

REPORT INFORMATION
  Report Type: Spontaneous
  Country: US (occurrence: US)
  Receive Date: 20140722
  Receipt Date: 20150325
  Transmission Date: 20150720
  Serious: Yes (Hospitalization, Disabling, Other)
  Sender: FDA-Public Use
  Company Number: US-009507513-1407USA009351

PATIENT
  Sex: Male

DRUGS (1)
  1. PROPECIA [Suspect]
     Active Substance: FINASTERIDE
     Indication: ALOPECIA
     Dosage: 1 MG, QD
     Route: 048
     Dates: start: 200003, end: 20010131

REACTIONS (29)
  - Anaemia [Unknown]
  - Brain injury [Not Recovered/Not Resolved]
  - Amnesia [Unknown]
  - Osteomyelitis [Unknown]
  - Dysuria [Unknown]
  - Suicide attempt [Unknown]
  - Staphylococcal infection [Unknown]
  - Hand fracture [Unknown]
  - Depression [Not Recovered/Not Resolved]
  - Light chain disease [Unknown]
  - Chronic kidney disease [Not Recovered/Not Resolved]
  - Hormone level abnormal [Unknown]
  - Tinnitus [Unknown]
  - Dyspnoea [Unknown]
  - Back pain [Unknown]
  - Sensory loss [Unknown]
  - Erectile dysfunction [Not Recovered/Not Resolved]
  - Decreased interest [Unknown]
  - Back injury [Not Recovered/Not Resolved]
  - Penis injury [Not Recovered/Not Resolved]
  - Mental impairment [Unknown]
  - Pollakiuria [Unknown]
  - Diabetes mellitus [Unknown]
  - Social problem [Unknown]
  - Sexual dysfunction [Not Recovered/Not Resolved]
  - Renal failure [Not Recovered/Not Resolved]
  - Loss of libido [Not Recovered/Not Resolved]
  - Endocrine disorder [Not Recovered/Not Resolved]
  - Coordination abnormal [Unknown]

NARRATIVE: CASE EVENT DATE: 200009
